FAERS Safety Report 6701860-1 (Version None)
Quarter: 2010Q2

REPORT INFORMATION
  Report Type: 
  Country: None (occurrence: None)
  Receive Date: 20100429
  Receipt Date: 20100426
  Transmission Date: 20101027
  Serious: Yes (Other)
  Sender: FDA-Public Use
  Company Number: JP-BAYER-201010554BYL

PATIENT
  Age: 66 Year
  Sex: Male
  Weight: 54 kg

DRUGS (15)
  1. NEXAVAR [Suspect]
     Indication: HEPATIC NEOPLASM MALIGNANT
     Dosage: TOTAL DAILY DOSE: 800 MG  UNIT DOSE: 200 MG
     Route: 048
     Dates: start: 20090619, end: 20090924
  2. NEXAVAR [Suspect]
     Dosage: UNIT DOSE: 200 MG
     Route: 048
     Dates: start: 20090925, end: 20100302
  3. URALYT [Concomitant]
     Dosage: SINCE BEFORE ADMINISTRATION
     Route: 048
  4. URSO 250 [Concomitant]
     Dosage: SINCE BEFORE ADMINISTRATION
     Route: 048
  5. GASTER D [Concomitant]
     Dosage: SINCE BEFORE ADMINISTRATION
     Route: 048
     Dates: end: 20090715
  6. GLAKAY [Concomitant]
     Dosage: SINCE BEFORE ADMINISTRATION
     Route: 048
  7. ALLOPURINOL [Concomitant]
     Dosage: SINCE BEFORE ADMINISTRATION
     Route: 048
  8. LOXONIN [Concomitant]
     Dosage: SINCE BEFORE ADMINISTRATION
     Route: 048
  9. DUROTEP [Concomitant]
     Dosage: SINCE BEFORE ADMINISTRATION, 4.2/3MG
     Route: 062
  10. DUROTEP [Concomitant]
     Dosage: TOTAL DAILY DOSE: 8.4 MG  UNIT DOSE: 4.2 MG
     Route: 062
  11. DUROTEP [Concomitant]
     Dosage: SINCE BEFORE ADMINISTRATION, 2.1/3MG
     Route: 062
  12. OXINORM [Concomitant]
     Dosage: SINCE BEFORE ADMINISTRATION
     Route: 048
  13. PURSENNID [Concomitant]
     Dosage: SINCE BEFORE ADMINISTRATION
     Route: 048
  14. TAKEPRON [Concomitant]
     Route: 048
     Dates: start: 20090716
  15. ZOMETA [Concomitant]
     Route: 042
     Dates: start: 20090716, end: 20090716

REACTIONS (5)
  - ANAEMIA [None]
  - HYPERTENSION [None]
  - MALLORY-WEISS SYNDROME [None]
  - PALMAR-PLANTAR ERYTHRODYSAESTHESIA SYNDROME [None]
  - WHITE BLOOD CELL COUNT DECREASED [None]
